FAERS Safety Report 17824639 (Version 2)
Quarter: 2020Q2

REPORT INFORMATION
  Report Type: Spontaneous
  Country: NL (occurrence: NL)
  Receive Date: 20200526
  Receipt Date: 20200608
  Transmission Date: 20200714
  Serious: Yes (Other)
  Sender: FDA-Public Use
  Company Number: ALC2020NL003863

PATIENT

DRUGS (1)
  1. LACRYVISC [Suspect]
     Active Substance: CARBOMER
     Indication: PRODUCT USED FOR UNKNOWN INDICATION
     Dosage: 1 DRP, QID (DROP (1/12 MILLILITRE))
     Route: 065

REACTIONS (4)
  - Blindness transient [Unknown]
  - Foreign body in eye [Unknown]
  - Eye pain [Unknown]
  - Eye infection [Unknown]

NARRATIVE: CASE EVENT DATE: 20200428
